FAERS Safety Report 13507857 (Version 6)
Quarter: 2020Q1

REPORT INFORMATION
  Report Type: Spontaneous
  Country: US (occurrence: US)
  Receive Date: 20170503
  Receipt Date: 20200316
  Transmission Date: 20200409
  Serious: No
  Sender: FDA-Public Use
  Company Number: US-PFIZER INC-2017187574

PATIENT
  Age: 56 Year
  Sex: Female

DRUGS (2)
  1. PRISTIQ EXTENDED-RELEASE [Suspect]
     Active Substance: DESVENLAFAXINE SUCCINATE
     Dosage: 75 MG, DAILY (50 MG/25 MG SIG: 1 TAB PO Q AM (EVERY MORNING) FOR BOTH)
     Route: 048
  2. PRISTIQ EXTENDED-RELEASE [Suspect]
     Active Substance: DESVENLAFAXINE SUCCINATE
     Dosage: 75 MG, DAILY (50 MG/25 MG SIG: 1 TAB PO QAM (EVERY MORNING) FOR BOTH)
     Route: 048

REACTIONS (1)
  - Withdrawal syndrome [Unknown]
